FAERS Safety Report 4935081-X (Version None)
Quarter: 2006Q1

REPORT INFORMATION
  Report Type: 
  Country: None (occurrence: None)
  Receive Date: 20060303
  Receipt Date: 20060303
  Transmission Date: 20060701
  Serious: Yes (Hospitalization)
  Sender: FDA-Public Use
  Company Number: None

PATIENT
  Sex: Male
  Weight: 85.1 kg

DRUGS (15)
  1. CLOFARABINE [Suspect]
     Indication: AMYOTROPHIC LATERAL SCLEROSIS
     Dosage: 47.7 MG X 4 DAYS IV
     Route: 042
     Dates: start: 20060128, end: 20060201
  2. ACYCLOVIR [Concomitant]
  3. NEXIUM [Concomitant]
  4. M.V.I. [Concomitant]
  5. ISOSORBIDE [Concomitant]
  6. FLOMAX [Concomitant]
  7. LESCOL [Concomitant]
  8. SPIRIVA [Concomitant]
  9. ADVAIR DISKUS 100/50 [Concomitant]
  10. NICOTINE [Concomitant]
  11. HYDROCHLOROTHIAZIDE [Concomitant]
  12. TOPROL-XL [Concomitant]
  13. GMCSF [Concomitant]
  14. AVANDAMET [Concomitant]
  15. MAX OX [Concomitant]

REACTIONS (4)
  - BACTERAEMIA [None]
  - HYPOTENSION [None]
  - PYREXIA [None]
  - SEPSIS [None]
